FAERS Safety Report 13573310 (Version 1)
Quarter: 2017Q2

REPORT INFORMATION
  Report Type: Spontaneous
  Country: SE (occurrence: SE)
  Receive Date: 20170523
  Receipt Date: 20170523
  Transmission Date: 20170830
  Serious: Yes (Other)
  Sender: FDA-Public Use
  Company Number: SE-PFIZER INC-2017221332

PATIENT
  Age: 35 Year
  Sex: Female

DRUGS (1)
  1. NEURONTIN [Suspect]
     Active Substance: GABAPENTIN
     Dosage: 1800 MG, DAILY
     Dates: end: 201703

REACTIONS (8)
  - Anaphylactic reaction [Unknown]
  - Swelling face [Unknown]
  - Abdominal pain upper [Unknown]
  - Amnesia [Unknown]
  - Hypersensitivity [Unknown]
  - Oedema [Unknown]
  - Epilepsy [Unknown]
  - Back pain [Unknown]
